FAERS Safety Report 10343406 (Version 2)
Quarter: 2014Q3

REPORT INFORMATION
  Report Type: Spontaneous
  Country: US (occurrence: US)
  Receive Date: 20140725
  Receipt Date: 20140805
  Transmission Date: 20150326
  Serious: Yes (Other)
  Sender: FDA-Public Use
  Company Number: US-BAYER-2014-108591

PATIENT
  Age: 78 Year
  Sex: Female
  Weight: 91 kg

DRUGS (4)
  1. XANAX [Concomitant]
     Active Substance: ALPRAZOLAM
  2. BAYER ASPIRIN REGIMEN REGULAR 325 MG STRENGTH [Suspect]
     Active Substance: ASPIRIN
     Dosage: 1 DF, QD
     Route: 048
  3. OXYCODONE [Concomitant]
     Active Substance: OXYCODONE
  4. DETROL [Concomitant]
     Active Substance: TOLTERODINE TARTRATE

REACTIONS (3)
  - Therapeutic response changed [None]
  - Haemorrhagic diathesis [Recovered/Resolved]
  - Intentional product misuse [None]
